FAERS Safety Report 16404787 (Version 1)
Quarter: 2019Q2

REPORT INFORMATION
  Report Type: Spontaneous
  Country: JP (occurrence: JP)
  Receive Date: 20190607
  Receipt Date: 20190607
  Transmission Date: 20190711
  Serious: Yes (Hospitalization, Other)
  Sender: FDA-Public Use
  Company Number: JP-009507513-1904JPN002888J

PATIENT
  Age: 65 Year
  Sex: Male
  Weight: 65 kg

DRUGS (7)
  1. TRANEXAMIC ACID. [Concomitant]
     Active Substance: TRANEXAMIC ACID
     Indication: HAEMOPTYSIS
     Dosage: 1 DOSAGE FORM, TID
     Route: 048
     Dates: start: 20190108, end: 20190327
  2. CARBOPLATIN. [Suspect]
     Active Substance: CARBOPLATIN
     Indication: NON-SMALL CELL LUNG CANCER
     Dosage: AUC5,ONCE
     Route: 041
     Dates: start: 20190207, end: 20190228
  3. DIHYDROCODEINE PHOSPHATE [Concomitant]
     Active Substance: DIHYDROCODEINE PHOSPHATE
     Indication: COUGH
     Dosage: 2 GRAM, BID
     Route: 048
     Dates: start: 20190228
  4. ABRAXANE [Suspect]
     Active Substance: PACLITAXEL
     Indication: NON-SMALL CELL LUNG CANCER
     Dosage: 177 MILLIGRAM, QW
     Route: 041
     Dates: start: 20190207, end: 20190228
  5. KEYTRUDA [Suspect]
     Active Substance: PEMBROLIZUMAB
     Indication: NON-SMALL CELL LUNG CANCER
     Dosage: 200 MILLIGRAM, Q3W
     Route: 041
     Dates: start: 20190207, end: 20190228
  6. LYRICA [Concomitant]
     Active Substance: PREGABALIN
     Indication: NEUROPATHY PERIPHERAL
     Dosage: 75 MILLIGRAM, QD
     Route: 048
     Dates: start: 20190228
  7. CARBAZOCHROME SODIUM SULFONATE (+) SODIUM CHLORIDE [Concomitant]
     Indication: HAEMOPTYSIS
     Dosage: 1 DOSAGE FORM, TID
     Route: 048
     Dates: start: 20190108, end: 20190327

REACTIONS (1)
  - Acute kidney injury [Recovered/Resolved]

NARRATIVE: CASE EVENT DATE: 20190307
